FAERS Safety Report 5241800-8 (Version None)
Quarter: 2007Q1

REPORT INFORMATION
  Report Type: 
  Country: None (occurrence: None)
  Receive Date: 20070220
  Receipt Date: 20070212
  Transmission Date: 20070707
  Serious: Yes (Hospitalization, Disabling)
  Sender: FDA-Public Use
  Company Number: US-ROCHE-479958

PATIENT
  Age: 73 Year
  Weight: 54.4 kg

DRUGS (2)
  1. XELODA [Suspect]
     Indication: DRUG USE FOR UNKNOWN INDICATION
     Dosage: PATIENTS SECOND COURSE.
     Route: 048
     Dates: start: 20070111, end: 20070118
  2. XELODA [Suspect]
     Dosage: PATIENTS FIRST COURSE.
     Route: 048

REACTIONS (5)
  - ASTHENIA [None]
  - DISSEMINATED INTRAVASCULAR COAGULATION [None]
  - DIZZINESS [None]
  - HAEMOGLOBIN DECREASED [None]
  - PLATELET COUNT DECREASED [None]
